FAERS Safety Report 25757535 (Version 1)
Quarter: 2025Q3

REPORT INFORMATION
  Report Type: Spontaneous
  Country: JP (occurrence: JP)
  Receive Date: 20250903
  Receipt Date: 20250903
  Transmission Date: 20251021
  Serious: Yes (Hospitalization, Other)
  Sender: PFIZER
  Company Number: JP-PFIZER INC-PV202500104962

PATIENT
  Age: 80 Year
  Sex: Female

DRUGS (3)
  1. IBRANCE [Suspect]
     Active Substance: PALBOCICLIB
     Indication: Breast cancer recurrent
     Route: 048
     Dates: start: 20220520, end: 20250425
  2. FASLODEX [Concomitant]
     Active Substance: FULVESTRANT
     Route: 042
     Dates: start: 20220520
  3. DENOSUMAB [Concomitant]
     Active Substance: DENOSUMAB
     Dates: start: 20220520

REACTIONS (2)
  - Pulmonary toxicity [Not Recovered/Not Resolved]
  - White blood cell count decreased [Unknown]

NARRATIVE: CASE EVENT DATE: 20250425
